FAERS Safety Report 6562140-0 (Version None)
Quarter: 2010Q1

REPORT INFORMATION
  Report Type: 
  Country: None (occurrence: None)
  Receive Date: 20100130
  Receipt Date: 20091226
  Transmission Date: 20100710
  Serious: No
  Sender: FDA-Public Use
  Company Number: US-ABBOTT-09P-163-0606052-00

PATIENT
  Sex: Female
  Weight: 82.174 kg

DRUGS (4)
  1. HUMIRA [Suspect]
     Indication: ANKYLOSING SPONDYLITIS
     Route: 058
     Dates: start: 20090901
  2. PREMARIN [Concomitant]
     Indication: HYSTERECTOMY
  3. NEXIUM [Concomitant]
     Indication: HIATUS HERNIA
     Route: 048
  4. MICARDIS HCT [Concomitant]
     Indication: HYPERTENSION
     Dosage: 80/12.5
     Route: 048

REACTIONS (3)
  - JOINT SWELLING [None]
  - PAIN [None]
  - PAIN IN EXTREMITY [None]
